FAERS Safety Report 7103133-4 (Version None)
Quarter: 2010Q4

REPORT INFORMATION
  Report Type: 
  Country: None (occurrence: None)
  Receive Date: 20101115
  Receipt Date: 20090217
  Transmission Date: 20110411
  Serious: No
  Sender: FDA-Public Use
  Company Number: US-KINGPHARMUSA00001-K200900170

PATIENT
  Sex: Female

DRUGS (4)
  1. CYTOMEL [Suspect]
     Indication: AUTOIMMUNE THYROIDITIS
     Dosage: ONE HALF TO TWO TABLETS, TID
     Route: 048
     Dates: start: 20030101
  2. CYTOMEL [Suspect]
     Indication: MUSCLE DISORDER
     Dosage: ONE-QUARTER TABLET UP TO SIX TIMES A DAY
     Route: 048
  3. SYNTHROID [Concomitant]
     Dosage: UNK
  4. VITAMINS                           /90003601/ [Concomitant]

REACTIONS (13)
  - ASTHENIA [None]
  - BLOOD PRESSURE ABNORMAL [None]
  - CHEST DISCOMFORT [None]
  - EPISTAXIS [None]
  - GAIT DISTURBANCE [None]
  - HEADACHE [None]
  - INSOMNIA [None]
  - MENTAL IMPAIRMENT [None]
  - MOBILITY DECREASED [None]
  - MUSCLE DISORDER [None]
  - OCULAR DISCOMFORT [None]
  - PALPITATIONS [None]
  - VEIN DISORDER [None]
